FAERS Safety Report 14342055 (Version 1)
Quarter: 2018Q1

REPORT INFORMATION
  Report Type: Spontaneous
  Country: FR (occurrence: FR)
  Receive Date: 20180102
  Receipt Date: 20180102
  Transmission Date: 20180509
  Serious: Yes (Other)
  Sender: FDA-Public Use
  Company Number: FR-MYLANLABS-2017M1083267

PATIENT
  Age: 56 Year
  Sex: Male
  Weight: 114 kg

DRUGS (2)
  1. EXACYL [Suspect]
     Active Substance: TRANEXAMIC ACID
     Indication: PROPHYLAXIS
     Route: 042
  2. KETOPROFEN. [Suspect]
     Active Substance: KETOPROFEN
     Indication: PROPHYLAXIS
     Route: 042

REACTIONS (4)
  - Erythema [Recovered/Resolved]
  - Acne [Recovered/Resolved]
  - Swelling face [Recovered/Resolved]
  - Pruritus [Recovered/Resolved]

NARRATIVE: CASE EVENT DATE: 20171123
